FAERS Safety Report 16813427 (Version 1)
Quarter: 2019Q3

REPORT INFORMATION
  Report Type: Spontaneous
  Country: IN (occurrence: IN)
  Receive Date: 20190917
  Receipt Date: 20190917
  Transmission Date: 20191005
  Serious: Yes (Other)
  Sender: FDA-Public Use
  Company Number: PHHY2019IN213234

PATIENT
  Age: 27 Year
  Sex: Female
  Weight: 41.2 kg

DRUGS (10)
  1. DELAMANID [Suspect]
     Active Substance: DELAMANID
     Indication: PULMONARY TUBERCULOSIS
     Dosage: 100 MG, BID
     Route: 065
     Dates: start: 20181128, end: 20190827
  2. FORMOTEROL [Concomitant]
     Active Substance: FORMOTEROL
     Indication: DYSPNOEA
  3. BUDESONIDE. [Concomitant]
     Active Substance: BUDESONIDE
     Indication: COUGH
  4. MOXIFLOXACIN. [Suspect]
     Active Substance: MOXIFLOXACIN
     Indication: PULMONARY TUBERCULOSIS
     Dosage: 600 MG, QD
     Route: 065
     Dates: start: 20181128, end: 20190827
  5. BEDAQUILINE [Suspect]
     Active Substance: BEDAQUILINE
     Indication: PULMONARY TUBERCULOSIS
     Dosage: 200 MG, TIW
     Route: 065
     Dates: start: 20181128, end: 20190827
  6. BUDESONIDE. [Concomitant]
     Active Substance: BUDESONIDE
     Indication: DYSPNOEA
     Dosage: UNK
     Route: 065
  7. OMEPRAZOLE. [Concomitant]
     Active Substance: OMEPRAZOLE
     Indication: GASTRITIS
     Dosage: UNK
     Route: 065
     Dates: start: 20181128
  8. CLOFAZIMINE [Suspect]
     Active Substance: CLOFAZIMINE
     Indication: PULMONARY TUBERCULOSIS
     Dosage: 100 MG, QD
     Route: 065
     Dates: start: 20181128, end: 20190827
  9. PREGABA [Concomitant]
     Active Substance: PREGABALIN
     Indication: NEUROPATHY PERIPHERAL
     Dosage: UNK
     Route: 065
     Dates: start: 20181128
  10. FORMOTEROL [Concomitant]
     Active Substance: FORMOTEROL
     Indication: COUGH
     Route: 065

REACTIONS (7)
  - Gastroenteritis [Unknown]
  - Diarrhoea [Unknown]
  - Pyrexia [Unknown]
  - Incorrect product administration duration [Unknown]
  - Vomiting [Unknown]
  - Haemoglobin decreased [Unknown]
  - Alanine aminotransferase decreased [Unknown]

NARRATIVE: CASE EVENT DATE: 20190824
